FAERS Safety Report 5684045-X (Version None)
Quarter: 2008Q1

REPORT INFORMATION
  Report Type: 
  Country: None (occurrence: None)
  Receive Date: 20080328
  Receipt Date: 20080318
  Transmission Date: 20080703
  Serious: Yes (Disabling, Other)
  Sender: FDA-Public Use
  Company Number: PT-AMGEN-UK269453

PATIENT
  Sex: Male
  Weight: 85 kg

DRUGS (2)
  1. ARANESP [Suspect]
     Indication: RENAL FAILURE CHRONIC
     Route: 042
     Dates: start: 20030707, end: 20061023
  2. NEORECORMON [Concomitant]
     Route: 042
     Dates: start: 20061023

REACTIONS (2)
  - GASTRIC ULCER HAEMORRHAGE [None]
  - MYELODYSPLASTIC SYNDROME [None]
